FAERS Safety Report 8402310 (Version 2)
Quarter: 2015Q4

REPORT INFORMATION
  Report Type: Spontaneous
  Country: US (occurrence: US)
  Receive Date: 20120213
  Receipt Date: 20151214
  Transmission Date: 20160305
  Serious: Yes (Hospitalization, Other)
  Sender: FDA-Public Use
  Company Number: US-JNJFOC-20101208398

PATIENT
  Sex: Female

DRUGS (6)
  1. VICODIN [Suspect]
     Active Substance: ACETAMINOPHEN\HYDROCODONE BITARTRATE
     Indication: PRODUCT USED FOR UNKNOWN INDICATION
     Route: 048
  2. METHYLPREDNISOLONE. [Suspect]
     Active Substance: METHYLPREDNISOLONE
     Indication: PAIN
     Route: 065
  3. LYRICA [Suspect]
     Active Substance: PREGABALIN
     Indication: PRODUCT USED FOR UNKNOWN INDICATION
     Route: 048
  4. AMITRIPTYLINE [Suspect]
     Active Substance: AMITRIPTYLINE
     Indication: PRODUCT USED FOR UNKNOWN INDICATION
     Route: 048
  5. LEVAQUIN [Suspect]
     Active Substance: LEVOFLOXACIN
     Indication: WOUND INFECTION
     Route: 048
  6. LEVAQUIN [Suspect]
     Active Substance: LEVOFLOXACIN
     Indication: PROPHYLAXIS
     Route: 048

REACTIONS (4)
  - Arthralgia [Unknown]
  - Tendonitis [Unknown]
  - Complex regional pain syndrome [Not Recovered/Not Resolved]
  - Complex regional pain syndrome [Unknown]
